FAERS Safety Report 6407913-X (Version None)
Quarter: 2009Q4

REPORT INFORMATION
  Report Type: 
  Country: None (occurrence: None)
  Receive Date: 20091016
  Receipt Date: 20091008
  Transmission Date: 20100525
  Serious: Yes (Hospitalization, Other)
  Sender: FDA-Public Use
  Company Number: SPV1-2009-01974

PATIENT
  Age: 11 Year
  Sex: Male

DRUGS (2)
  1. ADDERALL XR 10 [Suspect]
     Indication: ATTENTION DEFICIT/HYPERACTIVITY DISORDER
     Dosage: 10 MG, UNKNOWN, UNKNOWN, 15 MG, UNKNOWN, UNKNOWN
     Dates: start: 20080201, end: 20090929
  2. ADDERALL XR 10 [Suspect]
     Indication: ATTENTION DEFICIT/HYPERACTIVITY DISORDER
     Dosage: 10 MG, UNKNOWN, UNKNOWN, 15 MG, UNKNOWN, UNKNOWN
     Dates: start: 20090930

REACTIONS (2)
  - LACRIMATION INCREASED [None]
  - PRURITUS [None]
